FAERS Safety Report 5567320-9 (Version None)
Quarter: 2007Q4

REPORT INFORMATION
  Report Type: 
  Country: None (occurrence: None)
  Receive Date: 20071219
  Receipt Date: 20070511
  Transmission Date: 20080405
  Serious: No
  Sender: FDA-Public Use
  Company Number: US-ABBOTT-07P-163-0368791-00

PATIENT
  Sex: Female
  Weight: 59.02 kg

DRUGS (2)
  1. DILAUDID [Suspect]
     Indication: PAIN
     Route: 048
     Dates: start: 20070501, end: 20070505
  2. VICODIN [Suspect]
     Indication: PAIN
     Route: 048
     Dates: start: 20070501, end: 20070505

REACTIONS (1)
  - CONFUSIONAL STATE [None]
